FAERS Safety Report 15333575 (Version 2)
Quarter: 2018Q3

REPORT INFORMATION
  Report Type: Spontaneous
  Country: US (occurrence: US)
  Receive Date: 20180830
  Receipt Date: 20180917
  Transmission Date: 20181010
  Serious: Yes (Other)
  Sender: FDA-Public Use
  Company Number: US-TORRENT-00006800

PATIENT
  Age: 66 Year
  Sex: Female
  Weight: 122 kg

DRUGS (8)
  1. LEVOTHYROXINE. [Concomitant]
     Active Substance: LEVOTHYROXINE
     Indication: HYPOTHYROIDISM
     Dosage: 2 TABLETS TOGETHER IN MORNING ON EMPTY STOMACH,?SINCE 40 YEARS
  2. SOTALOL. [Interacting]
     Active Substance: SOTALOL
     Indication: ATRIAL FIBRILLATION
     Dosage: 1 TABLET EVERY 12 HOURS
  3. APIXABAN [Concomitant]
     Active Substance: APIXABAN
     Indication: THROMBOSIS
  4. LASIX [Concomitant]
     Active Substance: FUROSEMIDE
     Indication: FLUID RETENTION
     Dosage: UNSPECIFIED
  5. AMLODIPINE [Concomitant]
     Active Substance: AMLODIPINE BESYLATE
     Indication: HYPERTENSION
  6. ISOSORBIDE MONONITRATE. [Suspect]
     Active Substance: ISOSORBIDE MONONITRATE
     Indication: JOINT SWELLING
     Dosage: UNKNOWN
     Dates: start: 20180515
  7. POTASSIUM CHLORIDE. [Concomitant]
     Active Substance: POTASSIUM CHLORIDE
     Indication: PRODUCT USED FOR UNKNOWN INDICATION
     Dosage: TWO TABLETS A DAY
  8. OXYBUTYNIN. [Concomitant]
     Active Substance: OXYBUTYNIN CHLORIDE
     Indication: PRODUCT USED FOR UNKNOWN INDICATION

REACTIONS (4)
  - Drug ineffective for unapproved indication [Unknown]
  - Drug interaction [Unknown]
  - Off label use [Unknown]
  - Atrial fibrillation [Not Recovered/Not Resolved]

NARRATIVE: CASE EVENT DATE: 20180612
